FAERS Safety Report 10346258 (Version 2)
Quarter: 2014Q3

REPORT INFORMATION
  Report Type: Spontaneous
  Country: US (occurrence: US)
  Receive Date: 20140728
  Receipt Date: 20140902
  Transmission Date: 20150326
  Serious: No
  Sender: FDA-Public Use
  Company Number: US-009507513-1407USA011959

PATIENT
  Age: 86 Year
  Sex: Female

DRUGS (1)
  1. COPPERTONE WATERBABIES PURE AND SIMPLE SPF 50 [Suspect]
     Active Substance: OCTINOXATE\OCTISALATE\ZINC OXIDE
     Indication: BASAL CELL CARCINOMA
     Dosage: UNK, UNKNOWN
     Route: 061

REACTIONS (1)
  - Skin discolouration [Unknown]
